FAERS Safety Report 7945025-4 (Version None)
Quarter: 2011Q4

REPORT INFORMATION
  Report Type: 
  Country: None (occurrence: None)
  Receive Date: 20111129
  Receipt Date: 20111003
  Transmission Date: 20120403
  Serious: Yes (Death)
  Sender: FDA-Public Use
  Company Number: US-MYLANLABS-2010S1022867

PATIENT
  Sex: Female

DRUGS (1)
  1. ALLOPURINOL TAB [Suspect]
     Indication: GOUT
     Dates: start: 20070703

REACTIONS (1)
  - STEVENS-JOHNSON SYNDROME [None]
